FAERS Safety Report 26149668 (Version 2)
Quarter: 2025Q4

REPORT INFORMATION
  Report Type: Report from Study
  Country: US (occurrence: US)
  Receive Date: 20251212
  Receipt Date: 20251218
  Transmission Date: 20260117
  Serious: Yes (Hospitalization, Other)
  Sender: TAKEDA
  Company Number: US-TAKEDA-2025TUS110742

PATIENT
  Sex: Male
  Weight: 83 kg

DRUGS (2)
  1. VON WILLEBRAND FACTOR (RECOMBINANT) [Suspect]
     Active Substance: VON WILLEBRAND FACTOR (RECOMBINANT)
     Indication: Von Willebrand^s disease
     Dosage: 5000 INTERNATIONAL UNIT, QD
     Dates: start: 20210813, end: 20220330
  2. VON WILLEBRAND FACTOR (RECOMBINANT) [Suspect]
     Active Substance: VON WILLEBRAND FACTOR (RECOMBINANT)
     Dosage: 5000 INTERNATIONAL UNIT, QD
     Dates: start: 20220404, end: 20220414

REACTIONS (2)
  - Gastrointestinal haemorrhage [Recovered/Resolved]
  - Aortic stenosis [Recovered/Resolved]

NARRATIVE: CASE EVENT DATE: 20220322
